FAERS Safety Report 25180671 (Version 2)
Quarter: 2025Q4

REPORT INFORMATION
  Report Type: Spontaneous
  Country: EU (occurrence: EU)
  Receive Date: 20250409
  Receipt Date: 20251021
  Transmission Date: 20260118
  Serious: Yes (Other)
  Sender: SANDOZ
  Company Number: EU-SANDOZ-SDZ2025FR021640

PATIENT
  Age: 78 Year
  Sex: Female

DRUGS (9)
  1. CANDESARTAN CILEXETIL\HYDROCHLOROTHIAZIDE [Suspect]
     Active Substance: CANDESARTAN CILEXETIL\HYDROCHLOROTHIAZIDE
     Indication: Hypertension
     Dosage: 1 DF, QD FOR 1 YEAR, 8 MG/12.5 MG
     Route: 065
     Dates: start: 202402, end: 202502
  2. CANDESARTAN CILEXETIL\HYDROCHLOROTHIAZIDE [Suspect]
     Active Substance: CANDESARTAN CILEXETIL\HYDROCHLOROTHIAZIDE
     Dosage: 1.5 DF, QD
     Route: 065
     Dates: start: 2025
  3. CANDESARTAN CILEXETIL\HYDROCHLOROTHIAZIDE [Suspect]
     Active Substance: CANDESARTAN CILEXETIL\HYDROCHLOROTHIAZIDE
     Dosage: 2 DF, QD
     Route: 065
     Dates: start: 2025, end: 2025
  4. CANDESARTAN CILEXETIL\HYDROCHLOROTHIAZIDE [Suspect]
     Active Substance: CANDESARTAN CILEXETIL\HYDROCHLOROTHIAZIDE
     Dosage: 4 MG
     Route: 065
  5. CHONDROITIN SULFATE (BOVINE) [Concomitant]
     Active Substance: CHONDROITIN SULFATE (BOVINE)
     Indication: Product used for unknown indication
     Dosage: UNK
     Route: 065
     Dates: end: 2025
  6. MAGNESIUM [Concomitant]
     Active Substance: MAGNESIUM
     Indication: Product used for unknown indication
     Dosage: UNK, FOR THE FIRST TIME TODAY
     Route: 065
  7. RICE BRAN OIL [Concomitant]
     Active Substance: RICE BRAN OIL
     Indication: Product used for unknown indication
     Dosage: UNK, 1 AT  NOON AND 1 IN THE EVENING
     Route: 065
  8. SILICON [Concomitant]
     Active Substance: SILICON
     Indication: Product used for unknown indication
     Dosage: UNK
     Route: 065
     Dates: end: 2025
  9. STEROGYL [Concomitant]
     Active Substance: ERGOCALCIFEROL
     Indication: Product used for unknown indication
     Dosage: UNK
     Route: 065
     Dates: end: 2025

REACTIONS (5)
  - Hypertension [Unknown]
  - Dyspepsia [Unknown]
  - Hypotension [Unknown]
  - Muscle spasms [Unknown]
  - Drug ineffective [Unknown]

NARRATIVE: CASE EVENT DATE: 20250101
